FAERS Safety Report 8445560-9 (Version None)
Quarter: 2012Q2

REPORT INFORMATION
  Report Type: 
  Country: None (occurrence: None)
  Receive Date: 20120618
  Receipt Date: 20120404
  Transmission Date: 20120825
  Serious: No
  Sender: FDA-Public Use
  Company Number: US-MYLANLABS-2012S1007379

PATIENT
  Age: 64 Year
  Sex: Female

DRUGS (1)
  1. ANASTROZOLE [Suspect]
     Indication: BREAST CANCER
     Dosage: TAKE 1 TABLET DAILY
     Route: 048
     Dates: start: 20120101

REACTIONS (1)
  - OESOPHAGEAL ULCER [None]
